FAERS Safety Report 17796221 (Version 1)
Quarter: 2020Q2

REPORT INFORMATION
  Report Type: Spontaneous
  Country: GB (occurrence: GB)
  Receive Date: 20200517
  Receipt Date: 20200517
  Transmission Date: 20200714
  Serious: Yes (Other)
  Sender: FDA-Public Use
  Company Number: NVSC2020GB132614

PATIENT
  Sex: Female

DRUGS (2)
  1. NIVOLUMAB [Suspect]
     Active Substance: NIVOLUMAB
     Indication: LUNG ADENOCARCINOMA
     Dosage: UNK
     Route: 065
  2. CARBOPLATIN. [Suspect]
     Active Substance: CARBOPLATIN
     Indication: LUNG ADENOCARCINOMA
     Dosage: UNK
     Route: 065

REACTIONS (12)
  - Nausea [Unknown]
  - Anxiety [Unknown]
  - Diarrhoea [Unknown]
  - Pulmonary congestion [Unknown]
  - Dyspnoea [Unknown]
  - Fatigue [Unknown]
  - Metastases to central nervous system [Unknown]
  - Thyroiditis [Unknown]
  - Abdominal pain [Unknown]
  - Sinus tachycardia [Unknown]
  - Palpitations [Unknown]
  - Metastases to spine [Unknown]
